FAERS Safety Report 24450669 (Version 1)
Quarter: 2024Q4

REPORT INFORMATION
  Report Type: Spontaneous
  Country: FR (occurrence: FR)
  Receive Date: 20241017
  Receipt Date: 20241017
  Transmission Date: 20250115
  Serious: Yes (Hospitalization)
  Sender: FRESENIUS KABI
  Company Number: None

PATIENT
  Age: 82 Year
  Sex: Female
  Weight: 65 kg

DRUGS (2)
  1. OXALIPLATIN [Suspect]
     Active Substance: OXALIPLATIN
     Indication: Adenocarcinoma gastric
     Dosage: ROUTE: INTRAVENOUS
     Dates: start: 20240808, end: 20240822
  2. OPDIVO 10 mg/ml, solution for dilution for infusion [Concomitant]
     Indication: Adenocarcinoma gastric
     Dosage: ROUTE: INTRAVENOUS
     Dates: start: 20240808, end: 20240822

REACTIONS (1)
  - Anaphylactic shock [Recovered/Resolved]

NARRATIVE: CASE EVENT DATE: 20240822
